FAERS Safety Report 15722412 (Version 1)
Quarter: 2018Q4

REPORT INFORMATION
  Report Type: Spontaneous
  Country: US (occurrence: US)
  Receive Date: 20181213
  Receipt Date: 20181213
  Transmission Date: 20190205
  Serious: Yes (Hospitalization)
  Sender: FDA-Public Use
  Company Number: None

PATIENT
  Age: 56 Year
  Sex: Male
  Weight: 87 kg

DRUGS (3)
  1. FLUDARABINE PHOSPHATE. [Concomitant]
     Active Substance: FLUDARABINE PHOSPHATE
     Dates: start: 20180831, end: 20180902
  2. AXICABTAGENE CILOLEUCEL [Suspect]
     Active Substance: AXICABTAGENE CILOLEUCEL
     Indication: DIFFUSE LARGE B-CELL LYMPHOMA
     Dosage: ?          OTHER FREQUENCY:ONCE;OTHER ROUTE:INFUSED VIA CENTRAL LINE?
     Dates: start: 20180905, end: 20180905
  3. CYCLOPHOSPHAMIDE. [Concomitant]
     Active Substance: CYCLOPHOSPHAMIDE
     Dates: start: 20180831, end: 20180902

REACTIONS (6)
  - Supraventricular tachycardia [None]
  - Febrile neutropenia [None]
  - Dizziness [None]
  - Insomnia [None]
  - Fatigue [None]
  - Cytokine release syndrome [None]

NARRATIVE: CASE EVENT DATE: 20181009
